FAERS Safety Report 19058079 (Version 1)
Quarter: 2021Q1

REPORT INFORMATION
  Report Type: Report from Study
  Country: GB (occurrence: GB)
  Receive Date: 20210324
  Receipt Date: 20210324
  Transmission Date: 20210420
  Serious: Yes (Other)
  Sender: FDA-Public Use
  Company Number: GB-GILEAD-2021-0522507

PATIENT
  Sex: Male

DRUGS (2)
  1. EMTRICITABINE/TENOFOVIR ALAFENAMIDE [Suspect]
     Active Substance: EMTRICITABINE\TENOFOVIR
     Indication: PRODUCT USED FOR UNKNOWN INDICATION
     Dosage: 200 MG
     Route: 065
  2. RALTEGRAVIR. [Concomitant]
     Active Substance: RALTEGRAVIR
     Dosage: 12000 MG

REACTIONS (1)
  - Chemotherapy [Not Recovered/Not Resolved]
